FAERS Safety Report 23916826 (Version 4)
Quarter: 2024Q3

REPORT INFORMATION
  Report Type: Spontaneous
  Country: IR (occurrence: IR)
  Receive Date: 20240529
  Receipt Date: 20240704
  Transmission Date: 20241017
  Serious: Yes (Other)
  Sender: NOVARTIS
  Company Number: IR-002147023-NVSC2024IR111356

PATIENT
  Age: 40 Year
  Sex: Male

DRUGS (9)
  1. NEORAL [Suspect]
     Active Substance: CYCLOSPORINE
     Indication: Behcet^s syndrome
     Dosage: 50 MG, QD (SGC) (AROUND 6 MONTHS AGO)
     Route: 048
  2. NEORAL [Suspect]
     Active Substance: CYCLOSPORINE
     Dosage: 100 MG, QD (SGC) (FIRST WEEK OF MAY 2024)
     Route: 048
     Dates: start: 202405
  3. PREDNISOLONE [Concomitant]
     Active Substance: PREDNISOLONE
     Indication: Behcet^s syndrome
     Dosage: 5 MG, QD (A FEW YEARS AGO)
     Route: 048
  4. COLCHICINE [Concomitant]
     Active Substance: COLCHICINE
     Indication: Behcet^s syndrome
     Dosage: 1 MG, QD (A FEW YEARS AGO)
     Route: 048
  5. FOLIC ACID [Concomitant]
     Active Substance: FOLIC ACID
     Indication: Product used for unknown indication
     Dosage: 1 MG, QD (A FEW YEARS AGO)
     Route: 048
  6. RIVAROXABAN [Concomitant]
     Active Substance: RIVAROXABAN
     Indication: Thrombophlebitis
     Dosage: 15 MG, QD (2 WEEKS AGO)
     Route: 048
     Dates: start: 20240510
  7. ASPIRIN [Concomitant]
     Active Substance: ASPIRIN
     Indication: Thrombophlebitis
     Dosage: 80 MG, QD ( 2 WEEKS AGO)
     Route: 048
     Dates: start: 20240510
  8. SCOPOLAMINE [Concomitant]
     Active Substance: SCOPOLAMINE
     Indication: Product used for unknown indication
     Dosage: UNK (2-3 TABS DAILY PRN)
     Route: 048
  9. VITAMIN D3 [Concomitant]
     Active Substance: CHOLECALCIFEROL
     Indication: Product used for unknown indication
     Dosage: UNK
     Route: 065

REACTIONS (9)
  - Nephrolithiasis [Not Recovered/Not Resolved]
  - Haematuria [Recovered/Resolved]
  - Pain [Not Recovered/Not Resolved]
  - Fungal infection [Recovered/Resolved]
  - Rash [Recovered/Resolved]
  - Pruritus [Recovered/Resolved]
  - Urine output increased [Unknown]
  - Costovertebral angle tenderness [Unknown]
  - Micturition urgency [Unknown]

NARRATIVE: CASE EVENT DATE: 20240512
